FAERS Safety Report 13732320 (Version 1)
Quarter: 2017Q3

REPORT INFORMATION
  Report Type: Spontaneous
  Country: US (occurrence: US)
  Receive Date: 20170707
  Receipt Date: 20170707
  Transmission Date: 20171127
  Serious: No
  Sender: FDA-Public Use
  Company Number: US-SA-2017SA080096

PATIENT

DRUGS (1)
  1. SAR231893 [Suspect]
     Active Substance: DUPILUMAB
     Route: 065

REACTIONS (6)
  - Pruritus [Recovering/Resolving]
  - Conjunctivitis [Not Recovered/Not Resolved]
  - Eye disorder [Unknown]
  - Erythema [Unknown]
  - Eczema [Unknown]
  - Skin exfoliation [Unknown]
